FAERS Safety Report 15047746 (Version 1)
Quarter: 2018Q2

REPORT INFORMATION
  Report Type: Spontaneous
  Country: GB (occurrence: GB)
  Receive Date: 20180621
  Receipt Date: 20180621
  Transmission Date: 20180711
  Serious: Yes (Other)
  Sender: FDA-Public Use
  Company Number: GB-009507513-1806GBR008514

PATIENT
  Age: 5 Year
  Sex: Male

DRUGS (8)
  1. NEBULA [Concomitant]
  2. IBUPROFEN. [Concomitant]
     Active Substance: IBUPROFEN
  3. CALPOL [Concomitant]
     Active Substance: ACETAMINOPHEN
  4. CETIRIZINE HYDROCHLORIDE. [Concomitant]
     Active Substance: CETIRIZINE HYDROCHLORIDE
  5. MONTELUKAST SODIUM. [Suspect]
     Active Substance: MONTELUKAST SODIUM
     Indication: WHEEZING
     Route: 048
     Dates: start: 20180520, end: 20180521
  6. ALBUTEROL. [Concomitant]
     Active Substance: ALBUTEROL
  7. AMOXICILLIN (+) CLAVULANATE POTASSIUM [Concomitant]
     Active Substance: AMOXICILLIN\CLAVULANATE POTASSIUM
  8. PREDNISOLONE. [Concomitant]
     Active Substance: PREDNISOLONE

REACTIONS (1)
  - Sleep terror [Recovered/Resolved]

NARRATIVE: CASE EVENT DATE: 20180521
